FAERS Safety Report 19509519 (Version 4)
Quarter: 2025Q1

REPORT INFORMATION
  Report Type: Spontaneous
  Country: CA (occurrence: CA)
  Receive Date: 20210709
  Receipt Date: 20250103
  Transmission Date: 20250409
  Serious: Yes (Other)
  Sender: CELLTRION
  Company Number: CA-CELLTRION INC.-2021CA009087

PATIENT

DRUGS (9)
  1. RITUXIMAB [Suspect]
     Active Substance: RITUXIMAB
     Indication: Systemic scleroderma
     Dosage: 1000 MILLIGRAM, 1 EVERY 2 WEEKS
     Route: 042
  2. MYCOPHENOLATE MOFETIL [Suspect]
     Active Substance: MYCOPHENOLATE MOFETIL
     Indication: Product used for unknown indication
     Route: 065
  3. BENADRYL [Concomitant]
     Active Substance: DIPHENHYDRAMINE HYDROCHLORIDE
     Route: 048
  4. CALCIUM CARBONATE [Concomitant]
     Active Substance: CALCIUM CARBONATE
  5. METHYLPREDNISOLONE SODIUM SUCCINATE [Concomitant]
     Active Substance: METHYLPREDNISOLONE SODIUM SUCCINATE
     Route: 042
  6. PREDNISONE [Concomitant]
     Active Substance: PREDNISONE
     Route: 048
  7. RABEPRAZOLE [Concomitant]
     Active Substance: RABEPRAZOLE
  8. TYLENOL [Concomitant]
     Active Substance: ACETAMINOPHEN
     Route: 048
  9. VITAMIN D3 [Concomitant]
     Active Substance: CHOLECALCIFEROL

REACTIONS (7)
  - Blood pressure diastolic abnormal [Unknown]
  - Blood pressure systolic increased [Unknown]
  - Oxygen saturation decreased [Unknown]
  - COVID-19 [Unknown]
  - Heart rate decreased [Unknown]
  - Off label use [Unknown]
  - Intentional product use issue [Unknown]
